FAERS Safety Report 10258989 (Version 1)
Quarter: 2014Q2

REPORT INFORMATION
  Report Type: Spontaneous
  Country: JP (occurrence: JP)
  Receive Date: 20140625
  Receipt Date: 20140625
  Transmission Date: 20141212
  Serious: Yes (Other)
  Sender: FDA-Public Use
  Company Number: JP-B.I. PHARMACEUTICALS,INC./RIDGEFIELD-2014-BI-28462NB

PATIENT
  Age: 72 Year
  Sex: Male

DRUGS (3)
  1. TRAZENTA [Suspect]
     Indication: DIABETES MELLITUS
     Dosage: 5 MG
     Route: 048
     Dates: start: 201405
  2. METGLUCO [Suspect]
     Indication: DIABETES MELLITUS
     Route: 048
  3. PPI [Concomitant]
     Indication: PEPTIC ULCER
     Route: 048

REACTIONS (1)
  - Rheumatic disorder [Unknown]
